FAERS Safety Report 15291821 (Version 1)
Quarter: 2018Q3

REPORT INFORMATION
  Report Type: Report from Study
  Country: ES (occurrence: ES)
  Receive Date: 20180817
  Receipt Date: 20180817
  Transmission Date: 20181010
  Serious: Yes (Hospitalization)
  Sender: FDA-Public Use
  Company Number: ES-TEVA-2018-ES-942785

PATIENT
  Age: 23 Month
  Sex: Male
  Weight: 10.8 kg

DRUGS (5)
  1. MERCAPTOPURINA (405A) [Suspect]
     Active Substance: MERCAPTOPURINE
     Indication: ACUTE LYMPHOCYTIC LEUKAEMIA
     Dosage: .6 MILLIGRAM DAILY;
     Route: 048
     Dates: start: 20171108
  2. METOTREXATO (418A) [Suspect]
     Active Substance: METHOTREXATE
     Indication: ACUTE LYMPHOCYTIC LEUKAEMIA
     Route: 042
     Dates: start: 20171116, end: 20171213
  3. SEPTRIN PEDIATRICO 8 MG/40 MG/ML SUSPENSION ORAL , 1 FRASCO DE 100 ML [Concomitant]
     Active Substance: SULFAMETHOXAZOLE\TRIMETHOPRIM
     Indication: PROPHYLAXIS
     Route: 048
     Dates: start: 20170811
  4. LABETALOL HIDROCLORURO (900CH) [Concomitant]
     Indication: HYPERTENSION
     Route: 048
     Dates: start: 20170927
  5. AMLODIPINO (2503A) [Concomitant]
     Active Substance: AMLODIPINE BESYLATE
     Indication: HYPERTENSION
     Route: 048
     Dates: start: 20170927

REACTIONS (2)
  - Influenza [Recovered/Resolved]
  - Febrile neutropenia [Recovered/Resolved]

NARRATIVE: CASE EVENT DATE: 20171216
